FAERS Safety Report 6154188-5 (Version None)
Quarter: 2009Q2

REPORT INFORMATION
  Report Type: 
  Country: None (occurrence: None)
  Receive Date: 20090410
  Receipt Date: 20090402
  Transmission Date: 20091009
  Serious: Yes (Other)
  Sender: FDA-Public Use
  Company Number: 2009-01302

PATIENT
  Age: 56 Year
  Sex: 0

DRUGS (3)
  1. VELCADE [Suspect]
     Indication: MULTIPLE MYELOMA
     Dosage: 1.3 MG/M2, INTRAVENOUS
     Route: 042
  2. DEXAMETHASONE 4MG TAB [Concomitant]
  3. THALIDOMIDE [Concomitant]

REACTIONS (2)
  - ASTHENIA [None]
  - MENINGITIS [None]
